FAERS Safety Report 6243843-4 (Version None)
Quarter: 2009Q2

REPORT INFORMATION
  Report Type: 
  Country: None (occurrence: None)
  Receive Date: 20090623
  Receipt Date: 20090609
  Transmission Date: 20091009
  Serious: Yes (Death)
  Sender: FDA-Public Use
  Company Number: TRP_06281_2009

PATIENT
  Age: 24 Year
  Sex: Female

DRUGS (2)
  1. AMPHOTERICIN B [Suspect]
     Indication: BRONCHOPULMONARY ASPERGILLOSIS ALLERGIC
     Dosage: (DF) ; (DF INTRAOCULAR)
     Route: 031
  2. AMPHOTERICIN B [Suspect]
     Indication: ENDOPHTHALMITIS
     Dosage: (DF) ; (DF INTRAOCULAR)
     Route: 031

REACTIONS (14)
  - ABDOMINAL PAIN [None]
  - ASPERGILLOMA [None]
  - BRONCHOPULMONARY ASPERGILLOSIS ALLERGIC [None]
  - CARDIAC MURMUR [None]
  - CARDIAC VALVE VEGETATION [None]
  - CIRCULATORY COLLAPSE [None]
  - COMPLICATIONS OF TRANSPLANTED LUNG [None]
  - DYSPNOEA [None]
  - ENDOPHTHALMITIS [None]
  - FUNGAL ENDOCARDITIS [None]
  - FUNGAL SEPSIS [None]
  - INFECTION IN AN IMMUNOCOMPROMISED HOST [None]
  - INTESTINAL INFARCTION [None]
  - MITRAL VALVE INCOMPETENCE [None]
